FAERS Safety Report 8974555 (Version 1)
Quarter: 2012Q4

REPORT INFORMATION
  Report Type: 
  Country: US (occurrence: US)
  Receive Date: 20121219
  Receipt Date: 20121219
  Transmission Date: 20130627
  Serious: Yes (Death, Other)
  Sender: FDA-Public Use
  Company Number: US-VERTEX PHARMACEUTICALS INC.-2012-026366

PATIENT
  Age: 65 Year
  Sex: Female

DRUGS (3)
  1. INCIVEK [Suspect]
     Indication: HEPATITIS C
     Dosage: UNK
     Route: 048
     Dates: start: 20120809, end: 20121105
  2. PEGASYS [Suspect]
     Indication: HEPATITIS C
     Dosage: UNK
     Route: 058
     Dates: start: 20120809
  3. RIBAVIRIN [Suspect]
     Indication: HEPATITIS C
     Dosage: UNK
     Route: 048
     Dates: start: 20120809

REACTIONS (8)
  - Death [Fatal]
  - Dysphonia [Unknown]
  - Hypokalaemia [Unknown]
  - Anaemia [Unknown]
  - Rash generalised [Unknown]
  - Skin ulcer [Unknown]
  - Swelling face [Unknown]
  - Oedema peripheral [None]
